FAERS Safety Report 9907412 (Version 2)
Quarter: 2014Q1

REPORT INFORMATION
  Report Type: Not Available
  Country: US (occurrence: US)
  Receive Date: 20140218
  Receipt Date: 20140221
  Transmission Date: 20141002
  Serious: Yes (Death)
  Sender: FDA-Public Use
  Company Number: US-ONYX-2014-0377

PATIENT
  Age: 68 Year
  Sex: Female

DRUGS (6)
  1. KYPROLIS [Suspect]
     Indication: PLASMA CELL MYELOMA
     Route: 042
     Dates: start: 20130708, end: 20140129
  2. REVLIMID [Concomitant]
     Indication: PLASMA CELL MYELOMA
  3. LISINOPRIL [Concomitant]
     Indication: CARDIAC DISORDER
  4. LISINOPRIL [Concomitant]
     Indication: HYPERTENSION
  5. HCTZ [Concomitant]
     Indication: CARDIAC DISORDER
  6. HCTZ [Concomitant]
     Indication: HYPERTENSION

REACTIONS (2)
  - Pulmonary embolism [Fatal]
  - Neutropenia [Unknown]
